FAERS Safety Report 4423763-8 (Version None)
Quarter: 2004Q3

REPORT INFORMATION
  Report Type: 
  Country: None (occurrence: None)
  Receive Date: 20040805
  Receipt Date: 20040722
  Transmission Date: 20050211
  Serious: Yes (Other)
  Sender: FDA-Public Use
  Company Number: 2004052008

PATIENT
  Age: 1 Year

DRUGS (1)
  1. AMPICILLIN AND SULBACTAM [Suspect]
     Indication: LOWER RESPIRATORY TRACT INFLAMMATION
     Dosage: (TID), INTRAVENOUS
     Route: 042

REACTIONS (2)
  - DRUG INEFFECTIVE [None]
  - STAPHYLOCOCCAL INFECTION [None]
